FAERS Safety Report 12654848 (Version 1)
Quarter: 2016Q3

REPORT INFORMATION
  Report Type: Spontaneous
  Country: US (occurrence: None)
  Receive Date: 20160816
  Receipt Date: 20160816
  Transmission Date: 20161109
  Serious: Yes (Other)
  Sender: FDA-Public Use
  Company Number: None

PATIENT
  Age: 64 Year
  Sex: Female
  Weight: 72.1 kg

DRUGS (18)
  1. FENTANYL. [Concomitant]
     Active Substance: FENTANYL
  2. GLYCOPYRROLATE. [Concomitant]
     Active Substance: GLYCOPYRROLATE
  3. CACL [Concomitant]
  4. ZOFRAN [Concomitant]
     Active Substance: ONDANSETRON HYDROCHLORIDE
  5. FUROSEMIDE. [Concomitant]
     Active Substance: FUROSEMIDE
  6. ANTI-THYMOCYTE GLOBULIN, 45.7875/ 91.75ML [Suspect]
     Active Substance: THYMOCYTE IMMUNE GLOBULIN NOS
     Indication: RENAL TRANSPLANT
     Route: 042
     Dates: start: 20160814
  7. BENADRYL [Concomitant]
     Active Substance: DIPHENHYDRAMINE HYDROCHLORIDE
  8. NEOSTIGMINE [Concomitant]
     Active Substance: NEOSTIGMINE
  9. TYLENOL [Concomitant]
     Active Substance: ACETAMINOPHEN
  10. FAMOTIDINE. [Concomitant]
     Active Substance: FAMOTIDINE
  11. PROPOFOL. [Concomitant]
     Active Substance: PROPOFOL
  12. CISATRACURIUM. [Concomitant]
     Active Substance: CISATRACURIUM
  13. CLINDAMYCIN [Concomitant]
     Active Substance: CLINDAMYCIN\CLINDAMYCIN PHOSPHATE
  14. METHYLPREDNISOLONE. [Concomitant]
     Active Substance: METHYLPREDNISOLONE
  15. LIDOCAINE. [Concomitant]
     Active Substance: LIDOCAINE
  16. MIDAZOLAM [Concomitant]
     Active Substance: MIDAZOLAM\MIDAZOLAM HYDROCHLORIDE
  17. SUCCINYLCHOLINE [Concomitant]
     Active Substance: SUCCINYLCHOLINE
  18. HEPARIN [Concomitant]
     Active Substance: HEPARIN SODIUM

REACTIONS (3)
  - Mediastinal disorder [None]
  - Post procedural complication [None]
  - Pulmonary oedema [None]

NARRATIVE: CASE EVENT DATE: 20160814
